FAERS Safety Report 5289278-2 (Version None)
Quarter: 2007Q2

REPORT INFORMATION
  Report Type: 
  Country: None (occurrence: None)
  Receive Date: 20070404
  Receipt Date: 20070404
  Transmission Date: 20071010
  Serious: Yes (Hospitalization)
  Sender: FDA-Public Use
  Company Number: None

PATIENT
  Sex: Female
  Weight: 51.3 kg

DRUGS (2)
  1. CARBOPLATIN [Suspect]
     Dosage: 783 MG
     Dates: end: 20070314
  2. TAXOTERE [Suspect]
     Dosage: 115 MG
     Dates: end: 20070314

REACTIONS (2)
  - NEUTROPHIL COUNT DECREASED [None]
  - PYREXIA [None]
